FAERS Safety Report 6642984-7 (Version None)
Quarter: 2010Q1

REPORT INFORMATION
  Report Type: 
  Country: None (occurrence: None)
  Receive Date: 20100319
  Receipt Date: 20100316
  Transmission Date: 20100710
  Serious: Yes (Death, Other)
  Sender: FDA-Public Use
  Company Number: A0848448A

PATIENT
  Sex: Male

DRUGS (2)
  1. PROMACTA [Suspect]
     Indication: THROMBOCYTOPENIA
     Dosage: 50MG PER DAY
     Dates: start: 20090401, end: 20091005
  2. RITUXIMAB [Concomitant]
     Indication: THROMBOCYTOPENIA

REACTIONS (4)
  - DISEASE PROGRESSION [None]
  - DRUG INEFFECTIVE [None]
  - HAEMATOLOGICAL MALIGNANCY [None]
  - HAEMORRHAGE INTRACRANIAL [None]
